FAERS Safety Report 12746876 (Version 1)
Quarter: 2016Q3

REPORT INFORMATION
  Report Type: Spontaneous
  Country: US (occurrence: US)
  Receive Date: 20160915
  Receipt Date: 20160915
  Transmission Date: 20161109
  Serious: No
  Sender: FDA-Public Use
  Company Number: US-ASTELLAS-2015US033395

PATIENT
  Sex: Male

DRUGS (1)
  1. XTANDI [Suspect]
     Active Substance: ENZALUTAMIDE
     Indication: PROSTATE CANCER
     Dosage: 160 MG (40 MG X 4 CAPSULES), ONCE DAILY (D1- D30 Q30D)
     Route: 065

REACTIONS (8)
  - Prostatic specific antigen increased [Unknown]
  - Back pain [Not Recovered/Not Resolved]
  - Pain [Not Recovered/Not Resolved]
  - Myalgia [Not Recovered/Not Resolved]
  - Sleep disorder [Unknown]
  - Musculoskeletal chest pain [Not Recovered/Not Resolved]
  - Musculoskeletal pain [Unknown]
  - Asthenia [Unknown]
